FAERS Safety Report 9990563 (Version 1)
Quarter: 2014Q1

REPORT INFORMATION
  Report Type: Report from Study
  Country: US (occurrence: US)
  Receive Date: 20140310
  Receipt Date: 20140310
  Transmission Date: 20141002
  Serious: No
  Sender: FDA-Public Use
  Company Number: US-ABBVIE-13P-163-1131326-00

PATIENT
  Age: 39 Year
  Sex: Male
  Weight: 95.34 kg

DRUGS (3)
  1. HUMIRA [Suspect]
     Indication: CROHN^S DISEASE
     Dates: start: 20130801, end: 20130801
  2. HUMIRA [Suspect]
  3. ENDOCET [Concomitant]
     Indication: PRODUCT USED FOR UNKNOWN INDICATION

REACTIONS (3)
  - Fatigue [Recovered/Resolved]
  - Influenza like illness [Recovered/Resolved]
  - Pain [Recovered/Resolved]
